FAERS Safety Report 9667413 (Version 2)
Quarter: 2013Q4

REPORT INFORMATION
  Report Type: Spontaneous
  Country: US (occurrence: US)
  Receive Date: 20131104
  Receipt Date: 20131206
  Transmission Date: 20140711
  Serious: No
  Sender: FDA-Public Use
  Company Number: US-BIOGENIDEC-2013BI091050

PATIENT
  Sex: Female

DRUGS (8)
  1. TECFIDERA [Suspect]
     Indication: MULTIPLE SCLEROSIS
     Route: 048
     Dates: start: 20130830
  2. ENALAPRIL MALEATE [Concomitant]
  3. TRAMADOL HCL [Concomitant]
  4. AMBIEN [Concomitant]
  5. AMPYRA [Concomitant]
  6. RITALIN [Concomitant]
  7. SYNTHROID [Concomitant]
  8. ZOLOFT [Concomitant]

REACTIONS (2)
  - Diarrhoea [Unknown]
  - Dyspepsia [Unknown]
